FAERS Safety Report 14568238 (Version 1)
Quarter: 2018Q1

REPORT INFORMATION
  Report Type: Spontaneous
  Country: US (occurrence: US)
  Receive Date: 20180223
  Receipt Date: 20180223
  Transmission Date: 20180509
  Serious: No
  Sender: FDA-Public Use
  Company Number: US-IMPAX LABORATORIES, INC-2017-IPXL-02164

PATIENT
  Age: 8 Year
  Sex: Male

DRUGS (1)
  1. EMVERM [Suspect]
     Active Substance: MEBENDAZOLE
     Indication: ENTEROBIASIS
     Dosage: 100 MG, SINGLE
     Route: 048
     Dates: start: 20170711

REACTIONS (1)
  - Drug effect incomplete [Unknown]

NARRATIVE: CASE EVENT DATE: 20170711
